FAERS Safety Report 11004043 (Version 1)
Quarter: 2015Q2

REPORT INFORMATION
  Report Type: Spontaneous
  Country: US (occurrence: None)
  Receive Date: 20150407
  Receipt Date: 20150407
  Transmission Date: 20150821
  Serious: Yes (Other)
  Sender: FDA-Public Use
  Company Number: 20150193

PATIENT
  Age: 68 Year
  Sex: Female
  Weight: 50.8 kg

DRUGS (5)
  1. DELFLEX [Concomitant]
     Active Substance: CALCIUM CHLORIDE\DEXTROSE MONOHYDRATE\MAGNESIUM CHLORIDE\SODIUM CHLORIDE\SODIUM LACTATE
  2. PHOSLO [Concomitant]
     Active Substance: CALCIUM ACETATE
  3. LIBERTY CYCLER [Concomitant]
     Active Substance: DEVICE
  4. TUMS [Concomitant]
     Active Substance: CALCIUM CARBONATE
  5. VENOFER [Suspect]
     Active Substance: IRON SUCROSE
     Indication: CHRONIC KIDNEY DISEASE
     Dates: start: 20140826

REACTIONS (1)
  - Peritonitis [None]

NARRATIVE: CASE EVENT DATE: 20140826
